FAERS Safety Report 9443836 (Version 3)
Quarter: 2013Q3

REPORT INFORMATION
  Report Type: Report from Study
  Country: BR (occurrence: BR)
  Receive Date: 20130806
  Receipt Date: 20130903
  Transmission Date: 20140515
  Serious: Yes (Other)
  Sender: FDA-Public Use
  Company Number: BR-ROCHE-1258094

PATIENT
  Sex: Female
  Weight: 83 kg

DRUGS (11)
  1. XOLAIR [Suspect]
     Indication: ASTHMA
     Dosage: 1 AMPOULE
     Route: 065
  2. XOLAIR [Suspect]
     Route: 065
     Dates: start: 201306
  3. ALVESCO [Concomitant]
  4. ALENIA (BRAZIL) [Concomitant]
  5. DUOVENT [Concomitant]
  6. FORASEQ (BRAZIL) [Concomitant]
  7. SERETIDE [Concomitant]
  8. MONTELAR [Concomitant]
     Route: 065
     Dates: start: 2012
  9. LOSARTAN [Concomitant]
  10. OMEPRAZOLE [Concomitant]
  11. FLUOXETINE [Concomitant]

REACTIONS (2)
  - Asthma [Recovered/Resolved]
  - Diabetes mellitus [Recovered/Resolved]
